FAERS Safety Report 6925468-8 (Version None)
Quarter: 2010Q3

REPORT INFORMATION
  Report Type: 
  Country: None (occurrence: None)
  Receive Date: 20100813
  Receipt Date: 20100813
  Transmission Date: 20110219
  Serious: Yes (Life-Threatening)
  Sender: FDA-Public Use
  Company Number: None

PATIENT
  Age: 19 Year
  Sex: Female

DRUGS (1)
  1. EQUATE MOTION SICKNESS TABLETS [Suspect]
     Indication: MOTION SICKNESS
     Dosage: 1-2 TABLETS EVERY 4 TO 6 HRS NOT TO EXCEED 8 TABLETS IN 24 HOURS.
     Dates: start: 20100803

REACTIONS (7)
  - DIZZINESS [None]
  - HEADACHE [None]
  - MALAISE [None]
  - MUSCULOSKELETAL STIFFNESS [None]
  - NAUSEA [None]
  - RESPIRATORY ARREST [None]
  - UNRESPONSIVE TO STIMULI [None]
